FAERS Safety Report 5920958-9 (Version None)
Quarter: 2008Q4

REPORT INFORMATION
  Report Type: 
  Country: None (occurrence: None)
  Receive Date: 20081016
  Receipt Date: 20081008
  Transmission Date: 20090506
  Serious: Yes (Hospitalization)
  Sender: FDA-Public Use
  Company Number: JP-ALLERGAN-0809488US

PATIENT
  Sex: Male

DRUGS (4)
  1. BOTOX PLACEBO [Suspect]
     Indication: MUSCLE SPASTICITY
     Dosage: 100 UNITS, SINGLE
     Route: 030
     Dates: start: 20080215, end: 20080215
  2. BLINDED BOTULINUM TOXIN TYPE A - GENERAL [Suspect]
     Indication: MUSCLE SPASTICITY
     Dosage: 100 UNITS, SINGLE
     Route: 030
     Dates: start: 20080215, end: 20080215
  3. BOTOX PLACEBO [Suspect]
     Dosage: 100 UNITS, SINGLE
     Route: 030
     Dates: start: 20070831, end: 20070831
  4. BLINDED BOTULINUM TOXIN TYPE A - GENERAL [Suspect]
     Dosage: 100 UNITS, SINGLE
     Route: 030
     Dates: start: 20070831, end: 20070831

REACTIONS (6)
  - ANAEMIA [None]
  - DIZZINESS [None]
  - GAIT DISTURBANCE [None]
  - MALAISE [None]
  - NAUSEA [None]
  - VOMITING [None]
